FAERS Safety Report 6992301 (Version 3)
Quarter: 2012Q4

REPORT INFORMATION
  Report Type: 
  Country: CA (occurrence: CA)
  Receive Date: 20090512
  Receipt Date: 20121109
  Transmission Date: 20130627
  Serious: Yes (Life-Threatening, Hospitalization, Other)
  Sender: FDA-Public Use
  Company Number: PHHY2008CA27990

PATIENT
  Sex: Male

DRUGS (2)
  1. SANDOSTATIN LAR [Suspect]
     Indication: PHAEOCHROMOCYTOMA
     Dosage: 20 mg, QMO
     Route: 030
     Dates: start: 20070426, end: 20081002
  2. SANDOSTATIN LAR [Suspect]
     Indication: METASTATIC NEOPLASM
     Dosage: 20 mg, QMO
     Route: 030
     Dates: start: 20081223

REACTIONS (13)
  - Adhesion [Unknown]
  - Intestinal obstruction [Recovered/Resolved]
  - Vomiting [Recovered/Resolved]
  - Sepsis [Recovered/Resolved]
  - Fungal infection [Recovered/Resolved]
  - Clostridium difficile infection [Recovered/Resolved]
  - Urinary tract infection [Recovered/Resolved]
  - Cardiomegaly [Recovered/Resolved]
  - Device related infection [Recovered/Resolved]
  - Heart rate increased [Recovered/Resolved]
  - Weight decreased [Unknown]
  - Bowel movement irregularity [Unknown]
  - Asthenia [Unknown]
